FAERS Safety Report 6474382-3 (Version None)
Quarter: 2009Q4

REPORT INFORMATION
  Report Type: 
  Country: None (occurrence: None)
  Receive Date: 20091204
  Receipt Date: 20091120
  Transmission Date: 20100525
  Serious: Yes (Life-Threatening, Hospitalization)
  Sender: FDA-Public Use
  Company Number: CA-GENENTECH-219323

PATIENT
  Sex: Male
  Weight: 80 kg

DRUGS (6)
  1. BEVACIZUMAB [Suspect]
     Indication: COLON CANCER
     Dosage: 630 MG, Q3W
     Route: 042
     Dates: start: 20050830, end: 20051025
  2. CAPECITABINE [Suspect]
     Indication: COLON CANCER
     Dosage: 2000 MG, Q2W
     Route: 048
     Dates: start: 20050830, end: 20051025
  3. OXALIPLATIN [Suspect]
     Indication: COLON CANCER
     Dosage: 257 MG, Q3W
     Route: 042
     Dates: start: 20050830, end: 20051025
  4. TYLENOL (CAPLET) [Concomitant]
     Indication: DRUG USE FOR UNKNOWN INDICATION
     Dosage: UNK
     Dates: start: 20051031
  5. VITAMIN B6 [Concomitant]
     Indication: DRUG USE FOR UNKNOWN INDICATION
     Dosage: UNK
     Dates: start: 20051001, end: 20051005
  6. NEXIUM [Concomitant]
     Indication: DRUG USE FOR UNKNOWN INDICATION
     Dates: start: 20051005

REACTIONS (6)
  - ABSCESS [None]
  - CHOLECYSTITIS INFECTIVE [None]
  - DIARRHOEA [None]
  - ILEUS PARALYTIC [None]
  - PNEUMONIA ASPIRATION [None]
  - SEPSIS [None]
